FAERS Safety Report 10911891 (Version 1)
Quarter: 2015Q1

REPORT INFORMATION
  Report Type: Spontaneous
  Country: US (occurrence: None)
  Receive Date: 20150310
  Receipt Date: 20150310
  Transmission Date: 20150721
  Serious: Yes (Other)
  Sender: FDA-Public Use
  Company Number: None

PATIENT
  Age: 70 Year
  Sex: Male

DRUGS (1)
  1. INTELENCE [Suspect]
     Active Substance: ETRAVIRINE
     Route: 048
     Dates: start: 201406

REACTIONS (4)
  - Sleep disorder [None]
  - Condition aggravated [None]
  - Tachyphrenia [None]
  - Memory impairment [None]

NARRATIVE: CASE EVENT DATE: 20150306
